FAERS Safety Report 9950055 (Version 1)
Quarter: 2014Q1

REPORT INFORMATION
  Report Type: Report from Study
  Country: US (occurrence: US)
  Receive Date: 20140304
  Receipt Date: 20140304
  Transmission Date: 20141002
  Serious: No
  Sender: FDA-Public Use
  Company Number: US-ABBVIE-13P-163-1067802-00

PATIENT
  Age: 62 Year
  Sex: Female
  Weight: 56.75 kg

DRUGS (7)
  1. HUMIRA [Suspect]
     Indication: RHEUMATOID ARTHRITIS
     Dates: start: 2010, end: 2010
  2. HUMIRA [Suspect]
     Dates: start: 20130307
  3. PREDNISONE [Concomitant]
     Indication: RHEUMATOID ARTHRITIS
  4. FOLIC ACID [Concomitant]
     Indication: RHEUMATOID ARTHRITIS
  5. METFORMIN [Concomitant]
     Indication: DIABETES MELLITUS
  6. METHOTREXATE [Concomitant]
     Indication: RHEUMATOID ARTHRITIS
  7. UNKNOWN BLOOD PRESSURE [Concomitant]
     Indication: HYPERTENSION

REACTIONS (3)
  - Injection site swelling [Recovered/Resolved]
  - Rash pruritic [Recovering/Resolving]
  - Injection site pain [Recovered/Resolved]
